FAERS Safety Report 4875282-2 (Version None)
Quarter: 2006Q1

REPORT INFORMATION
  Report Type: 
  Country: None (occurrence: None)
  Receive Date: 20060109
  Receipt Date: 20051104
  Transmission Date: 20060701
  Serious: Yes (Other)
  Sender: FDA-Public Use
  Company Number: US-MERCK-0511USA01132

PATIENT
  Age: 26 Year
  Sex: Female

DRUGS (3)
  1. ALDOMET [Suspect]
     Indication: HYPERTENSION
     Route: 048
  2. LABETALOL HYDROCHLORIDE [Concomitant]
     Indication: HYPERTENSION
     Route: 042
  3. MAGNESIUM (UNSPECIFIED) [Concomitant]
     Route: 042

REACTIONS (7)
  - ACUTE CORONARY SYNDROME [None]
  - DRUG EXPOSURE DURING PREGNANCY [None]
  - GENERAL SYMPTOM [None]
  - HYPERTENSION [None]
  - MYOCARDIAL ISCHAEMIA [None]
  - PROTEINURIA [None]
  - PULMONARY OEDEMA [None]
